FAERS Safety Report 13878107 (Version 1)
Quarter: 2017Q3

REPORT INFORMATION
  Report Type: Spontaneous
  Country: FR (occurrence: FR)
  Receive Date: 20170817
  Receipt Date: 20170817
  Transmission Date: 20171127
  Serious: Yes (Death, Hospitalization)
  Sender: FDA-Public Use
  Company Number: FR-SA-2017SA149041

PATIENT
  Age: 80 Year
  Sex: Male

DRUGS (16)
  1. ENALAPRIL [Concomitant]
     Active Substance: ENALAPRIL
     Route: 065
     Dates: end: 201707
  2. VELMETIA [Concomitant]
     Active Substance: METFORMIN\SITAGLIPTIN
     Route: 065
     Dates: end: 201707
  3. INEXIUM [Suspect]
     Active Substance: ESOMEPRAZOLE
     Route: 048
     Dates: start: 201609, end: 20170727
  4. PREVISCAN [Suspect]
     Active Substance: FLUINDIONE
     Route: 048
     Dates: start: 20170719, end: 20170726
  5. PARACETAMOL [Suspect]
     Active Substance: ACETAMINOPHEN
     Dosage: FREQUENCY: 3 IN 1 IF NEEDED
     Route: 048
     Dates: start: 20170720, end: 20170802
  6. GENTAMICIN. [Concomitant]
     Active Substance: GENTAMICIN
     Route: 065
     Dates: start: 20170719
  7. LANTUS [Suspect]
     Active Substance: INSULIN GLARGINE
     Route: 058
     Dates: start: 20170727, end: 20170802
  8. ORBENINE [Suspect]
     Active Substance: CLOXACILLIN SODIUM
     Route: 042
     Dates: start: 20170719, end: 20170722
  9. VITAMIN K1 [Suspect]
     Active Substance: PHYTONADIONE
     Dosage: DOSE: 5 MG ON 21-JUL-17 AND 7 MG ON 22-JUL-17
     Route: 042
     Dates: start: 20170721, end: 20170722
  10. SERESTA [Concomitant]
     Active Substance: OXAZEPAM
     Route: 065
     Dates: end: 201707
  11. BISOPROLOL [Suspect]
     Active Substance: BISOPROLOL
     Route: 048
     Dates: start: 20170720, end: 20170802
  12. PLAVIX [Concomitant]
     Active Substance: CLOPIDOGREL BISULFATE
     Route: 065
     Dates: end: 20170719
  13. CRESTOR [Concomitant]
     Active Substance: ROSUVASTATIN CALCIUM
     Route: 065
     Dates: end: 201707
  14. CODOLIPRANE [Concomitant]
     Active Substance: ACETAMINOPHEN\CODEINE PHOSPHATE
     Route: 065
     Dates: end: 201707
  15. NEFOPAM [Suspect]
     Active Substance: NEFOPAM
     Dosage: FREQUENCY: 3IN 1 IF NEEDED
     Route: 042
     Dates: start: 20170720, end: 20170802
  16. AUGMENTIN [Concomitant]
     Active Substance: AMOXICILLIN\CLAVULANATE POTASSIUM
     Route: 065
     Dates: start: 201707, end: 20170718

REACTIONS (2)
  - Acute kidney injury [Fatal]
  - Glomerulonephritis [Fatal]

NARRATIVE: CASE EVENT DATE: 20170722
